FAERS Safety Report 5833797-4 (Version None)
Quarter: 2008Q3

REPORT INFORMATION
  Report Type: 
  Country: None (occurrence: None)
  Receive Date: 20080804
  Receipt Date: 20080804
  Transmission Date: 20090109
  Serious: No
  Sender: FDA-Public Use
  Company Number: None

PATIENT
  Age: 20 Year
  Sex: Female
  Weight: 68.0396 kg

DRUGS (1)
  1. FENTANYL TRANSDERMAL SYSTEM [Suspect]
     Indication: PAIN MANAGEMENT
     Dosage: 1 PATCH EVERY 3 DAYS TRANSDERMAL, 3 DAYS THEN REPEATED
     Route: 062
     Dates: start: 20080727, end: 20080730

REACTIONS (3)
  - APPLICATION SITE RASH [None]
  - RASH ERYTHEMATOUS [None]
  - RASH PRURITIC [None]
